FAERS Safety Report 4819721-1 (Version None)
Quarter: 2005Q4

REPORT INFORMATION
  Report Type: 
  Country: None (occurrence: None)
  Receive Date: 20051102
  Receipt Date: 20051021
  Transmission Date: 20060501
  Serious: Yes (Hospitalization)
  Sender: FDA-Public Use
  Company Number: 8012885

PATIENT
  Age: 15 Year
  Sex: Female

DRUGS (2)
  1. KEPPRA [Suspect]
     Indication: GRAND MAL CONVULSION
     Dosage: 500 MG 2/D PO
     Route: 048
     Dates: start: 20050101, end: 20051020
  2. FOLIC ACID [Concomitant]

REACTIONS (8)
  - APLASTIC ANAEMIA [None]
  - CONTUSION [None]
  - FATIGUE [None]
  - LYMPHOCYTE PERCENTAGE INCREASED [None]
  - NEUTROPHIL COUNT DECREASED [None]
  - PLATELET COUNT DECREASED [None]
  - TINNITUS [None]
  - WHITE BLOOD CELL COUNT DECREASED [None]
